FAERS Safety Report 6975303-7 (Version None)
Quarter: 2010Q3

REPORT INFORMATION
  Report Type: 
  Country: None (occurrence: None)
  Receive Date: 20100910
  Receipt Date: 20090225
  Transmission Date: 20110219
  Serious: No
  Sender: FDA-Public Use
  Company Number: US-WYE-H08366209

PATIENT
  Sex: Male

DRUGS (1)
  1. PRISTIQ [Suspect]
     Route: 065
     Dates: start: 20080701, end: 20090201

REACTIONS (3)
  - DRUG WITHDRAWAL SYNDROME [None]
  - PARAESTHESIA [None]
  - TINNITUS [None]
